FAERS Safety Report 23672339 (Version 1)
Quarter: 2024Q1

REPORT INFORMATION
  Report Type: Spontaneous
  Country: US (occurrence: US)
  Receive Date: 20240326
  Receipt Date: 20240326
  Transmission Date: 20240410
  Serious: No
  Sender: FDA-Public Use
  Company Number: US-SANOFI-01988098

PATIENT
  Age: 86 Year
  Sex: Female

DRUGS (2)
  1. LANTUS [Suspect]
     Active Substance: INSULIN GLARGINE
     Indication: Diabetes mellitus
     Dosage: 14 U, BID
  2. TRULICITY [Concomitant]
     Active Substance: DULAGLUTIDE
     Dosage: QW

REACTIONS (4)
  - Fall [Unknown]
  - Hand fracture [Unknown]
  - Weight decreased [Unknown]
  - Inappropriate schedule of product administration [Unknown]
